FAERS Safety Report 11776813 (Version 1)
Quarter: 2015Q4

REPORT INFORMATION
  Report Type: Spontaneous
  Country: US (occurrence: US)
  Receive Date: 20151125
  Receipt Date: 20151125
  Transmission Date: 20160304
  Serious: No
  Sender: FDA-Public Use
  Company Number: US-TEVA-531681USA

PATIENT
  Sex: Female

DRUGS (1)
  1. BUDESONIDE. [Suspect]
     Active Substance: BUDESONIDE
     Dosage: 0.5MG/2ML

REACTIONS (4)
  - Sinusitis [Unknown]
  - Ear infection [Unknown]
  - Product deposit [Unknown]
  - Upper respiratory tract infection [Unknown]
